FAERS Safety Report 5993603-4 (Version None)
Quarter: 2008Q4

REPORT INFORMATION
  Report Type: 
  Country: None (occurrence: None)
  Receive Date: 20081212
  Receipt Date: 20081209
  Transmission Date: 20090506
  Serious: Yes (Death, Other)
  Sender: FDA-Public Use
  Company Number: PHHY2008CR31040

PATIENT
  Age: 82 Year
  Sex: Female

DRUGS (6)
  1. EXELON [Suspect]
     Indication: DEMENTIA ALZHEIMER'S TYPE
     Dosage: 1.5 MG, BID
     Dates: start: 20080708
  2. EXELON [Suspect]
     Dosage: 3 MG/DAY
     Dates: start: 20080917
  3. CLONAZEPAM [Concomitant]
     Dosage: 3 DRP, TID
     Route: 048
     Dates: start: 20080917
  4. CLONAZEPAM [Concomitant]
     Dosage: 3 DRP, TID
     Route: 048
     Dates: start: 20080917
  5. FLUOXETINE [Concomitant]
     Dosage: 1 TAB/DAY
  6. CARDISPAN [Concomitant]
     Dosage: ONE AMPOULE EVERY WEEK FOR SIX WEEKS
     Dates: start: 20080708

REACTIONS (4)
  - DEATH [None]
  - HEPATIC FAILURE [None]
  - RENAL FAILURE [None]
  - RESTLESSNESS [None]
